FAERS Safety Report 14262568 (Version 6)
Quarter: 2019Q4

REPORT INFORMATION
  Report Type: Spontaneous
  Country: US (occurrence: US)
  Receive Date: 20171208
  Receipt Date: 20191226
  Transmission Date: 20200122
  Serious: No
  Sender: FDA-Public Use
  Company Number: US-PFIZER INC-2017522169

PATIENT
  Age: 70 Year
  Sex: Female
  Weight: 81.65 kg

DRUGS (4)
  1. GENOTROPIN [Suspect]
     Active Substance: SOMATROPIN
     Dosage: 0.2 MG, DAILY
     Dates: start: 20170720
  2. TAMOXIFEN [Concomitant]
     Active Substance: TAMOXIFEN
     Dosage: UNK
     Dates: end: 2010
  3. GENOTROPIN [Suspect]
     Active Substance: SOMATROPIN
     Dosage: 0.4 MG, UNK
  4. GENOTROPIN [Suspect]
     Active Substance: SOMATROPIN
     Dosage: 0.05 MG, 1X/DAY (BY INJECTION, ONCE A DAY IN THE THIGH)

REACTIONS (7)
  - Product quality issue [Unknown]
  - Malaise [Unknown]
  - Product dose omission [Unknown]
  - Device issue [Unknown]
  - Poor quality product administered [Unknown]
  - Product prescribing error [Unknown]
  - Arthralgia [Unknown]

NARRATIVE: CASE EVENT DATE: 20191029
